FAERS Safety Report 6132709-6 (Version None)
Quarter: 2009Q1

REPORT INFORMATION
  Report Type: 
  Country: None (occurrence: None)
  Receive Date: 20090324
  Receipt Date: 20090324
  Transmission Date: 20090719
  Serious: No
  Sender: FDA-Public Use
  Company Number: None

PATIENT
  Age: 17 Year
  Sex: Female
  Weight: 46.7205 kg

DRUGS (1)
  1. LEVOTHYROXINE SODIUM [Suspect]
     Indication: HYPOTHYROIDISM
     Dosage: 100 MCG 1 PO QD ORAL PRIOR TO 10/12/07
     Route: 048

REACTIONS (2)
  - DRUG EFFECT DECREASED [None]
  - HAIR TEXTURE ABNORMAL [None]
